FAERS Safety Report 5448201-8 (Version None)
Quarter: 2007Q3

REPORT INFORMATION
  Report Type: 
  Country: None (occurrence: None)
  Receive Date: 20070906
  Receipt Date: 20070823
  Transmission Date: 20080115
  Serious: No
  Sender: FDA-Public Use
  Company Number: RENA-12233

PATIENT
  Age: 81 Year
  Sex: Female
  Weight: 62.5 kg

DRUGS (7)
  1. RENAGEL [Suspect]
     Indication: HYPERPHOSPHATAEMIA
     Dates: start: 20070623, end: 20070624
  2. RENAGEL [Suspect]
     Indication: PRURITUS
     Dates: start: 20070623, end: 20070624
  3. LOPRESSOR [Concomitant]
  4. SALOSPIR [Concomitant]
  5. PENRAZOL (OMEPRAZOLE) [Concomitant]
  6. ONE-ALPHA [Concomitant]
  7. ARANESP [Concomitant]

REACTIONS (4)
  - CONDITION AGGRAVATED [None]
  - HYPERSENSITIVITY [None]
  - PRURITUS [None]
  - PURPURA [None]
